FAERS Safety Report 9117906 (Version 1)
Quarter: 2013Q1

REPORT INFORMATION
  Report Type: Spontaneous
  Country: US (occurrence: US)
  Receive Date: 20130208
  Receipt Date: 20130208
  Transmission Date: 20140127
  Serious: Yes (Hospitalization)
  Sender: FDA-Public Use
  Company Number: US-ELI_LILLY_AND_COMPANY-US201301010520

PATIENT
  Sex: Female

DRUGS (19)
  1. HUMULIN NPH [Suspect]
     Indication: DIABETES MELLITUS
     Dosage: 50 U, BID
  2. HUMALOG LISPRO [Suspect]
     Indication: DIABETES MELLITUS
     Dosage: 30 U, TID
  3. HYDROCODONE [Concomitant]
     Indication: PAIN
     Dosage: 1 DF, UNKNOWN
  4. LASIX [Concomitant]
     Indication: FLUID RETENTION
     Dosage: 40 MG, QD
  5. CARVEDILOL [Concomitant]
     Dosage: 25 MG, BID
     Route: 048
  6. AMLODIPINE [Concomitant]
     Indication: HYPERTENSION
     Dosage: 5 MG, UNKNOWN
  7. RANITIDINE [Concomitant]
     Indication: GASTROOESOPHAGEAL REFLUX DISEASE
     Dosage: 150 MG, BID
  8. PANTOPRAZOLE [Concomitant]
     Indication: GASTROOESOPHAGEAL REFLUX DISEASE
     Dosage: 40 MG, UNKNOWN
  9. ISORBIDE [Concomitant]
     Indication: HYPERTENSION
     Dosage: 60 MG, UNKNOWN
  10. XANAX                                   /USA/ [Concomitant]
     Dosage: 1 MG, BID
  11. ASPIRIN [Concomitant]
     Dosage: 81 MG, QD
  12. RANEXA [Concomitant]
     Indication: CHEST PAIN
     Dosage: 500 MG, BID
     Route: 048
  13. LEVOTHYROXIN [Concomitant]
     Indication: HYPERTHYROIDISM
     Dosage: 75 MG, UNKNOWN
  14. PROMETHAZINE [Concomitant]
     Indication: NAUSEA
     Dosage: 25 MG, QD
     Route: 048
  15. CRESTOR [Concomitant]
     Indication: BLOOD CHOLESTEROL INCREASED
     Dosage: 10 MG, QD
  16. OSCAL D                            /00944201/ [Concomitant]
     Dosage: 1 DF, TID
  17. MUCINEX DM [Concomitant]
     Indication: NASAL CONGESTION
     Dosage: 600 MG, BID
     Route: 048
  18. PROAIR HFA [Concomitant]
     Indication: DYSPNOEA
     Dosage: 90 UG, PRN
  19. COMBIVENT [Concomitant]
     Indication: DYSPNOEA
     Dosage: 1 DF, EVERY 4 HRS

REACTIONS (7)
  - Coronary artery disease [Unknown]
  - Cough [Unknown]
  - Feeling abnormal [Unknown]
  - Throat irritation [Unknown]
  - Tremor [Unknown]
  - Arthritis [Unknown]
  - Blood glucose decreased [Unknown]
